FAERS Safety Report 20331986 (Version 1)
Quarter: 2022Q1

REPORT INFORMATION
  Report Type: Spontaneous
  Country: US (occurrence: US)
  Receive Date: 20220113
  Receipt Date: 20220113
  Transmission Date: 20220424
  Serious: No
  Sender: FDA-Public Use
  Company Number: US-MYLANLABS-2021M1086911

PATIENT
  Age: 56 Year
  Sex: Female
  Weight: 108.86 kg

DRUGS (4)
  1. ESTRADIOL TRANSDERMAL SYSTEM [Suspect]
     Active Substance: ESTRADIOL
     Indication: Menopausal symptoms
     Dosage: 0.1 MILLIGRAM, QD (WEEKLY)
     Route: 062
     Dates: start: 202110
  2. BACLOFEN [Concomitant]
     Active Substance: BACLOFEN
     Indication: Pain
     Dosage: 10 MILLIGRAM, QD
     Dates: start: 2001
  3. TYLENOL                            /00020001/ [Concomitant]
     Dosage: 500 MILLIGRAM (500MG AS NEEDED)
  4. BENADRYL                           /00000402/ [Concomitant]
     Dosage: UNK UNK, PM
     Dates: start: 2001

REACTIONS (3)
  - Product adhesion issue [Unknown]
  - Off label use [Unknown]
  - Wrong technique in product usage process [Unknown]

NARRATIVE: CASE EVENT DATE: 20211001
